FAERS Safety Report 17650318 (Version 1)
Quarter: 2020Q2

REPORT INFORMATION
  Report Type: Spontaneous
  Country: US (occurrence: US)
  Receive Date: 20200408
  Receipt Date: 20200408
  Transmission Date: 20200713
  Serious: Yes (Other)
  Sender: FDA-Public Use
  Company Number: None

PATIENT
  Age: 63 Year
  Sex: Female

DRUGS (9)
  1. OMEPRAZOLE. [Concomitant]
     Active Substance: OMEPRAZOLE
  2. PIOGUTAZONE [Concomitant]
  3. ROSUVASTATIN. [Concomitant]
     Active Substance: ROSUVASTATIN
  4. XELJANZ [Suspect]
     Active Substance: TOFACITINIB CITRATE
     Indication: RHEUMATOID ARTHRITIS
     Dosage: ?          OTHER DOSE:1 TABLET;?
     Route: 048
     Dates: start: 20171108
  5. ATENOLOL. [Concomitant]
     Active Substance: ATENOLOL
  6. APAPCODEINE [Concomitant]
  7. IBANDRONATE [Concomitant]
     Active Substance: IBANDRONATE SODIUM
  8. LEVOTHYROXINE. [Concomitant]
     Active Substance: LEVOTHYROXINE
  9. OTEZLA [Concomitant]
     Active Substance: APREMILAST

REACTIONS (3)
  - Cyst removal [None]
  - Precancerous cells present [None]
  - Vaginal cyst [None]

NARRATIVE: CASE EVENT DATE: 20200401
